FAERS Safety Report 17202574 (Version 2)
Quarter: 2021Q1

REPORT INFORMATION
  Report Type: Spontaneous
  Country: CH (occurrence: CH)
  Receive Date: 20191226
  Receipt Date: 20210211
  Transmission Date: 20210419
  Serious: Yes (Other)
  Sender: FDA-Public Use
  Company Number: CH-SA-2019SA352820

PATIENT
  Age: 75 Year
  Sex: Male

DRUGS (14)
  1. STILNOX [Suspect]
     Active Substance: ZOLPIDEM TARTRATE
     Dosage: 10 MG, QD
     Route: 048
     Dates: start: 20191125
  2. COAPROVEL [Suspect]
     Active Substance: HYDROCHLOROTHIAZIDE\IRBESARTAN
     Dosage: 1 DF, QD
     Route: 048
     Dates: end: 20191125
  3. SERTRALINE [Suspect]
     Active Substance: SERTRALINE HYDROCHLORIDE
     Dosage: 50 MG, QD
     Route: 048
     Dates: end: 20191125
  4. OXAZEPAM. [Suspect]
     Active Substance: OXAZEPAM
     Dosage: 15 MG, PRN, MAX 3X/D. ; AS NECESSARY
     Route: 048
     Dates: start: 20191125
  5. METOPROLOL SUCCINATE. [Suspect]
     Active Substance: METOPROLOL SUCCINATE
     Dosage: 50 MG, QD
     Route: 048
     Dates: start: 20191130
  6. OXAZEPAM. [Suspect]
     Active Substance: OXAZEPAM
     Dosage: 7.5 MG, QOD
     Route: 048
     Dates: start: 20191126
  7. COAPROVEL [Suspect]
     Active Substance: HYDROCHLOROTHIAZIDE\IRBESARTAN
     Dosage: 1 DF, PRN, AS NECESSARY
     Route: 048
     Dates: start: 20191125, end: 20191129
  8. METOPROLOL SUCCINATE. [Suspect]
     Active Substance: METOPROLOL SUCCINATE
     Dosage: 100 MG, QD
     Route: 048
     Dates: start: 20191125, end: 20191130
  9. STILNOX [Suspect]
     Active Substance: ZOLPIDEM TARTRATE
     Dosage: 10 MG, QOD
     Route: 048
     Dates: end: 20191125
  10. STILNOX [Suspect]
     Active Substance: ZOLPIDEM TARTRATE
     Dosage: REDUCED DOSE
     Route: 065
  11. OXAZEPAM. [Suspect]
     Active Substance: OXAZEPAM
     Dosage: 15 MG, QD
     Route: 048
  12. ROCEPHINE [Concomitant]
     Active Substance: CEFTRIAXONE SODIUM
     Dosage: UNK UNK, UNK
     Route: 065
     Dates: start: 20191128
  13. SERTRALINE [Suspect]
     Active Substance: SERTRALINE HYDROCHLORIDE
     Dosage: 25 MG, QD
     Route: 048
     Dates: start: 20191130
  14. METOPROLOL SUCCINATE. [Suspect]
     Active Substance: METOPROLOL SUCCINATE
     Dosage: 150 MG, QD
     Route: 048
     Dates: end: 20191125

REACTIONS (1)
  - Thrombocytopenia [Recovering/Resolving]

NARRATIVE: CASE EVENT DATE: 20191125
